FAERS Safety Report 5848413-5 (Version None)
Quarter: 2008Q3

REPORT INFORMATION
  Report Type: 
  Country: None (occurrence: None)
  Receive Date: 20080818
  Receipt Date: 20080805
  Transmission Date: 20090109
  Serious: Yes (Hospitalization)
  Sender: FDA-Public Use
  Company Number: US-ELI_LILLY_AND_COMPANY-US200808001062

PATIENT
  Sex: Female
  Weight: 62.585 kg

DRUGS (4)
  1. OTHER PHARMA COMPANY INV DRUG [Suspect]
     Indication: B-CELL LYMPHOMA
     Dosage: 15 MG/M2, OTHER
     Route: 042
     Dates: start: 20070530
  2. GEMCITABINE HCL [Suspect]
     Indication: B-CELL LYMPHOMA
     Dosage: 400 MG/M2, OTHER
     Route: 042
     Dates: start: 20070531
  3. CYANOCOBALAMIN [Concomitant]
     Indication: VITAMIN SUPPLEMENTATION
  4. FOLIC ACID [Concomitant]
     Indication: VITAMIN SUPPLEMENTATION

REACTIONS (2)
  - DELIRIUM TREMENS [None]
  - THROMBOCYTOPENIA [None]
